FAERS Safety Report 23718793 (Version 1)
Quarter: 2024Q2

REPORT INFORMATION
  Report Type: Spontaneous
  Country: US (occurrence: US)
  Receive Date: 20240408
  Receipt Date: 20240408
  Transmission Date: 20240716
  Serious: No
  Sender: FDA-Public Use
  Company Number: US-INSUD PHARMA-2403US02746

PATIENT

DRUGS (2)
  1. PROGESTERONE [Suspect]
     Active Substance: PROGESTERONE
     Indication: Hormone replacement therapy
     Dosage: UNK
     Route: 048
     Dates: start: 202402
  2. PROGESTERONE [Suspect]
     Active Substance: PROGESTERONE
     Dosage: UNKNOWN
     Route: 048

REACTIONS (4)
  - Vaginal haemorrhage [Not Recovered/Not Resolved]
  - Poor quality product administered [Unknown]
  - Product odour abnormal [Unknown]
  - Product use in unapproved indication [Unknown]

NARRATIVE: CASE EVENT DATE: 20020201
